FAERS Safety Report 14784153 (Version 1)
Quarter: 2018Q2

REPORT INFORMATION
  Report Type: Spontaneous
  Country: NL (occurrence: NL)
  Receive Date: 20180420
  Receipt Date: 20180420
  Transmission Date: 20180711
  Serious: Yes (Other)
  Sender: FDA-Public Use
  Company Number: NL-SA-2018SA102215

PATIENT
  Age: 81 Year
  Sex: Male

DRUGS (21)
  1. CEFTRIAXONE. [Concomitant]
     Active Substance: CEFTRIAXONE
     Route: 065
  2. TEMAZEPAM. [Concomitant]
     Active Substance: TEMAZEPAM
     Route: 065
  3. RIFAMPICIN [Suspect]
     Active Substance: RIFAMPIN
     Route: 042
  4. DALTEPARIN [Concomitant]
     Active Substance: DALTEPARIN
     Route: 065
  5. PARACETAMOL [Concomitant]
     Active Substance: ACETAMINOPHEN
     Route: 065
  6. PHYTOMENADIONE [Concomitant]
     Active Substance: PHYTONADIONE
     Route: 065
  7. PHENPROCOUMON [Concomitant]
     Active Substance: PHENPROCOUMON
     Route: 065
  8. ONDANSETRON [Concomitant]
     Active Substance: ONDANSETRON
     Route: 065
  9. METRONIDAZOL [Concomitant]
     Active Substance: METRONIDAZOLE
     Route: 065
  10. FINASTERIDE. [Concomitant]
     Active Substance: FINASTERIDE
     Route: 065
  11. FUROSEMIDE. [Concomitant]
     Active Substance: FUROSEMIDE
     Route: 065
  12. DROPERIDOL. [Concomitant]
     Active Substance: DROPERIDOL
     Route: 065
  13. OXYCODONE [Concomitant]
     Active Substance: OXYCODONE
     Route: 065
  14. OXYCONTIN [Concomitant]
     Active Substance: OXYCODONE HYDROCHLORIDE
     Route: 065
  15. VANCOMYCIN [Suspect]
     Active Substance: VANCOMYCIN
     Route: 042
  16. MORPHINE [Concomitant]
     Active Substance: MORPHINE
     Route: 065
  17. PREDNISOLONE. [Concomitant]
     Active Substance: PREDNISOLONE
     Route: 065
  18. IPRATROPIUM [Concomitant]
     Active Substance: IPRATROPIUM
     Route: 065
  19. PRIMPERAN [Concomitant]
     Active Substance: METOCLOPRAMIDE HYDROCHLORIDE
     Route: 065
  20. DEXAMETHASONE. [Concomitant]
     Active Substance: DEXAMETHASONE
     Route: 065
  21. NYSTATIN. [Concomitant]
     Active Substance: NYSTATIN
     Route: 065

REACTIONS (2)
  - Linear IgA disease [Recovered/Resolved]
  - Skin lesion [Recovered/Resolved]
